FAERS Safety Report 5877517-6 (Version None)
Quarter: 2008Q3

REPORT INFORMATION
  Report Type: 
  Country: None (occurrence: None)
  Receive Date: 20080909
  Receipt Date: 20080902
  Transmission Date: 20090109
  Serious: Yes (Hospitalization, Other)
  Sender: FDA-Public Use
  Company Number: 2008SP015907

PATIENT
  Age: 43 Year
  Sex: Male

DRUGS (10)
  1. PEG-INTRON [Suspect]
     Indication: HEPATITIS C
     Dosage: 0.5 ML; QW; SC
     Route: 058
     Dates: start: 20071216, end: 20080622
  2. RIBAVIRIN [Suspect]
     Indication: HEPATITIS C
     Dosage: 800 MG;QD; PO
     Route: 048
     Dates: start: 20071216, end: 20080622
  3. ALBUTEROL [Suspect]
     Indication: DRUG USE FOR UNKNOWN INDICATION
  4. TRUVADA [Concomitant]
  5. REYATAZ [Concomitant]
  6. NORVIR [Concomitant]
  7. LEXAPRO [Concomitant]
  8. AMBIEN [Concomitant]
  9. REGLAN [Concomitant]
  10. IBUPROFEN [Concomitant]

REACTIONS (12)
  - CHOLECYSTITIS [None]
  - CONVULSION [None]
  - DEHYDRATION [None]
  - DEPRESSION [None]
  - DIARRHOEA [None]
  - FALL [None]
  - HEPATOSPLENOMEGALY [None]
  - MENTAL STATUS CHANGES [None]
  - ODYNOPHAGIA [None]
  - PNEUMONIA [None]
  - PYREXIA [None]
  - RENAL DISORDER [None]
